FAERS Safety Report 20335683 (Version 1)
Quarter: 2022Q1

REPORT INFORMATION
  Report Type: Spontaneous
  Country: DE (occurrence: DE)
  Receive Date: 20220114
  Receipt Date: 20220114
  Transmission Date: 20220423
  Serious: Yes (Other)
  Sender: FDA-Public Use
  Company Number: DE-VERTEX PHARMACEUTICALS-2022-000616

PATIENT
  Sex: Female
  Weight: 62 kg

DRUGS (13)
  1. ELEXACAFTOR\IVACAFTOR\TEZACAFTOR [Suspect]
     Active Substance: ELEXACAFTOR\IVACAFTOR\TEZACAFTOR
     Indication: Cystic fibrosis
     Dosage: 2 TABLETS
     Route: 048
     Dates: start: 202007, end: 202102
  2. ELEXACAFTOR\IVACAFTOR\TEZACAFTOR [Suspect]
     Active Substance: ELEXACAFTOR\IVACAFTOR\TEZACAFTOR
     Dosage: UNK
     Route: 048
     Dates: start: 202104
  3. KALYDECO [Suspect]
     Active Substance: IVACAFTOR
     Indication: Cystic fibrosis
     Dosage: 1 TAB
     Route: 048
     Dates: start: 202007, end: 202102
  4. KALYDECO [Suspect]
     Active Substance: IVACAFTOR
     Dosage: UNK
     Route: 048
     Dates: start: 202104
  5. BUDESONIDE [Concomitant]
     Active Substance: BUDESONIDE
     Dosage: 2X1 MG FOR 3 DAYS
     Dates: start: 20210818
  6. ADEX [IBUPROFEN] [Concomitant]
     Dosage: 1X1
     Route: 048
  7. MINERALS\VITAMINS [Concomitant]
     Active Substance: MINERALS\VITAMINS
     Dosage: 1X1 TAB
     Route: 048
  8. NASONEX [Concomitant]
     Active Substance: MOMETASONE FUROATE
     Dosage: 1 PER DAY
     Route: 045
  9. CREON [Concomitant]
     Active Substance: PANCRELIPASE AMYLASE\PANCRELIPASE LIPASE\PANCRELIPASE PROTEASE
     Dosage: 25000 IU AS REQUIRED
     Route: 048
  10. MUCOCLEAR [SODIUM CHLORIDE] [Concomitant]
  11. ALBUTEROL [Concomitant]
     Active Substance: ALBUTEROL
  12. PULMOZYME [Concomitant]
     Active Substance: DORNASE ALFA
  13. AMOXICILLIN\CLAVULANIC ACID [Concomitant]
     Active Substance: AMOXICILLIN\CLAVULANIC ACID
     Dosage: 125 THREE TIMES A DAY
     Dates: start: 20210818

REACTIONS (7)
  - Distal intestinal obstruction syndrome [Recovering/Resolving]
  - Pulmonary function test decreased [Unknown]
  - General physical health deterioration [Unknown]
  - Respiratory disorder [Unknown]
  - Increased bronchial secretion [Unknown]
  - Weight gain poor [Unknown]
  - Diabetes mellitus [Unknown]

NARRATIVE: CASE EVENT DATE: 20210101
